FAERS Safety Report 11435270 (Version 1)
Quarter: 2015Q3

REPORT INFORMATION
  Report Type: Spontaneous
  Country: US (occurrence: US)
  Receive Date: 20150831
  Receipt Date: 20150831
  Transmission Date: 20151125
  Serious: Yes (Other)
  Sender: FDA-Public Use
  Company Number: US-ASTRAZENECA-2015SE83485

PATIENT
  Age: 65 Year
  Sex: Female

DRUGS (3)
  1. RADIOTHERAPY [Concomitant]
     Active Substance: RADIATION THERAPY
  2. FASLODEX [Suspect]
     Active Substance: FULVESTRANT
     Route: 030
     Dates: start: 201406
  3. HORMONOTHERAPY [Concomitant]

REACTIONS (3)
  - Metastases to bone [Unknown]
  - Neuropathy peripheral [Unknown]
  - Hepatic lesion [Unknown]
